FAERS Safety Report 4344929-1 (Version None)
Quarter: 2004Q2

REPORT INFORMATION
  Report Type: 
  Country: None (occurrence: None)
  Receive Date: 20040420
  Receipt Date: 20040408
  Transmission Date: 20050107
  Serious: Yes (Hospitalization)
  Sender: FDA-Public Use
  Company Number: 04P-062-0257468-00

PATIENT
  Age: 34 Year
  Sex: Male

DRUGS (5)
  1. KALETRA [Suspect]
     Indication: HIV INFECTION
     Dosage: 3 CAPSULE, 2 IN 1 D, PER ORAL
     Route: 048
  2. LAMIVUDINE [Concomitant]
  3. DIDANOSINE [Concomitant]
  4. ACETYLCYSTEINE [Concomitant]
  5. CODEINE [Concomitant]

REACTIONS (8)
  - ATRIOVENTRICULAR BLOCK SECOND DEGREE [None]
  - BUNDLE BRANCH BLOCK RIGHT [None]
  - INFLUENZA [None]
  - OPEN WOUND [None]
  - SINUSITIS [None]
  - SUPERINFECTION [None]
  - SYNCOPE [None]
  - UPPER RESPIRATORY TRACT INFECTION BACTERIAL [None]
